FAERS Safety Report 9268842 (Version 1)
Quarter: 2013Q2

REPORT INFORMATION
  Report Type: Spontaneous
  Country: SE (occurrence: SE)
  Receive Date: 20130502
  Receipt Date: 20130502
  Transmission Date: 20140414
  Serious: Yes (Other)
  Sender: FDA-Public Use
  Company Number: SE-UCBSA-084449

PATIENT
  Age: 21 Year
  Sex: Male

DRUGS (3)
  1. VIMPAT [Suspect]
     Dosage: STRENGTH: 50 MG
     Route: 048
     Dates: start: 20130205, end: 20130212
  2. CONCERTA [Concomitant]
     Dosage: UNKNOWN DOSE
  3. RITALIN [Concomitant]
     Dosage: UNKNOWN DOSE

REACTIONS (4)
  - Depressed level of consciousness [Recovered/Resolved]
  - Rash [Recovered/Resolved]
  - Pruritus [Recovered/Resolved]
  - Amnesia [Recovered/Resolved]
